FAERS Safety Report 10258682 (Version 1)
Quarter: 2014Q2

REPORT INFORMATION
  Report Type: Spontaneous
  Country: US (occurrence: None)
  Receive Date: 20140624
  Receipt Date: 20140624
  Transmission Date: 20141212
  Serious: Yes (Other)
  Sender: FDA-Public Use
  Company Number: None

PATIENT
  Age: 59 Year
  Sex: Male
  Weight: 159 kg

DRUGS (2)
  1. PROTONIX [Suspect]
     Route: 042
     Dates: start: 20140402
  2. INFUSION SET [Suspect]
     Dosage: INFUSION PUMP

REACTIONS (1)
  - Incorrect drug administration duration [None]
